FAERS Safety Report 4951067-3 (Version None)
Quarter: 2006Q1

REPORT INFORMATION
  Report Type: 
  Country: None (occurrence: None)
  Receive Date: 20060322
  Receipt Date: 20060313
  Transmission Date: 20060701
  Serious: Yes (Death, Hospitalization)
  Sender: FDA-Public Use
  Company Number: US-MERCK-0603USA02207

PATIENT
  Age: 70 Year
  Sex: Male
  Weight: 84 kg

DRUGS (2)
  1. VIOXX [Suspect]
     Indication: BACK PAIN
     Route: 048
     Dates: start: 20010401, end: 20031101
  2. NORVASC [Concomitant]
     Route: 065

REACTIONS (3)
  - ARTERIOSCLEROSIS [None]
  - HYPERTENSION [None]
  - MYOCARDIAL INFARCTION [None]
